FAERS Safety Report 15244134 (Version 1)
Quarter: 2018Q3

REPORT INFORMATION
  Report Type: Report from Study
  Country: US (occurrence: GB)
  Receive Date: 20180806
  Receipt Date: 20180806
  Transmission Date: 20181010
  Serious: Yes (Hospitalization, Other)
  Sender: FDA-Public Use
  Company Number: GB-TEVA-2018-GB-935366

PATIENT
  Age: 64 Year
  Sex: Female
  Weight: 85 kg

DRUGS (27)
  1. PARACETAMOL [Concomitant]
     Active Substance: ACETAMINOPHEN
     Indication: BACK PAIN
  2. RAMIPRIL. [Concomitant]
     Active Substance: RAMIPRIL
     Indication: HYPOTHYROIDISM
     Dosage: 1.25 MG, QD
     Route: 048
     Dates: start: 20170320
  3. ATORVASTATIN [Concomitant]
     Active Substance: ATORVASTATIN
     Indication: HYPERCHOLESTEROLAEMIA
     Dosage: 20 MILLIGRAM DAILY; 20 MG, QD
     Route: 048
     Dates: start: 2015
  4. CETIRIZINE DIHYDROCHLORIDE [Concomitant]
     Active Substance: CETIRIZINE HYDROCHLORIDE
     Indication: PROPHYLAXIS OF NAUSEA AND VOMITING
  5. RAMIPRIL. [Concomitant]
     Active Substance: RAMIPRIL
     Indication: HYPERTENSION
  6. GLICLAZIDE [Concomitant]
     Active Substance: GLICLAZIDE
     Indication: DIABETES MELLITUS
     Dosage: 80 MILLIGRAM DAILY; 80 MG, QD
     Route: 048
     Dates: start: 20120912, end: 20170602
  7. ORAMORPH [Concomitant]
     Active Substance: MORPHINE SULFATE
     Indication: BACK PAIN
     Dosage: 5?10 MG, AS REQUIRED
     Route: 048
     Dates: start: 20170324
  8. ORAMORPH [Concomitant]
     Active Substance: MORPHINE SULFATE
     Indication: PAIN IN EXTREMITY
  9. METOCLOPRAMIDE. [Concomitant]
     Active Substance: METOCLOPRAMIDE
     Indication: PROPHYLAXIS OF NAUSEA AND VOMITING
     Dosage: TOTAL DAILY DOSE: 10 MG, AS REQUIRED
     Route: 048
     Dates: start: 20170131
  10. CETIRIZINE DIHYDROCHLORIDE [Concomitant]
     Active Substance: CETIRIZINE HYDROCHLORIDE
  11. LEVOTHYROXINE SODIUM. [Concomitant]
     Active Substance: LEVOTHYROXINE SODIUM
     Indication: HYPOTHYROIDISM
     Dosage: 150 MICROGRAM DAILY; 150 MICROGRAM, QD
     Route: 048
     Dates: start: 20120904
  12. CETIRIZINE DIHYDROCHLORIDE [Concomitant]
     Active Substance: CETIRIZINE HYDROCHLORIDE
     Indication: INJECTION SITE REACTION
     Dosage: 1 APPLICATION, CYCLICAL (DAY 1, 4, 8 AND 11 OF EVERY CYCLE)
     Route: 048
     Dates: start: 20170210
  13. ACICLOVIR [Concomitant]
     Active Substance: ACYCLOVIR
     Indication: VIRAL INFECTION
     Dosage: 400 MILLIGRAM DAILY; 400 MG, QD
     Route: 048
     Dates: start: 20170130
  14. MIDODRINE HYDROCHLORIDE. [Concomitant]
     Active Substance: MIDODRINE HYDROCHLORIDE
     Indication: HYPOTENSION
     Dosage: 2.5 MILLIGRAM DAILY; 2.5 MG, QD
     Route: 048
     Dates: start: 20170320
  15. RANITIDINE. [Concomitant]
     Active Substance: RANITIDINE
     Indication: GASTROOESOPHAGEAL REFLUX PROPHYLAXIS
     Dosage: 150 MILLIGRAM DAILY; 150 MG, QD
     Route: 048
     Dates: start: 20170131
  16. ALLOPURINOL. [Concomitant]
     Active Substance: ALLOPURINOL
     Indication: PROPHYLAXIS
     Dosage: 300 MILLIGRAM DAILY; 300 MG, QD
     Route: 048
     Dates: start: 20170131
  17. HYDROCORTISONE. [Concomitant]
     Active Substance: HYDROCORTISONE
     Indication: INJECTION SITE REACTION
     Dosage: 1 APPLICATION , CYCLICAL (DAY 1, 4, 8 AND 11 OF EVERY CYCLE)
     Route: 061
     Dates: start: 20170210
  18. GLICLAZIDE [Concomitant]
     Active Substance: GLICLAZIDE
     Dosage: 120 MILLIGRAM DAILY; 120 MG, QD
     Route: 048
     Dates: start: 20170208, end: 20170601
  19. DEXAMETHASONE. [Suspect]
     Active Substance: DEXAMETHASONE
     Indication: PLASMA CELL MYELOMA
     Dosage: 20 MG, CYCLICAL (DAYS 1, 2, 4, 5, 8, 9, 11 AND 12 OF 21 DAY CYCLE)
     Route: 048
     Dates: start: 20170131, end: 20170620
  20. BORTEZOMIB. [Suspect]
     Active Substance: BORTEZOMIB
     Indication: PLASMA CELL MYELOMA
     Dosage: 1.3 MG/M2, 16 MG, CYCLICAL (DAYS 1, 4, 8, AND 11 OF 21 DAY CYCLE)
     Route: 058
     Dates: start: 20170606, end: 20170620
  21. LOPERAMIDE [Concomitant]
     Active Substance: LOPERAMIDE
     Indication: PROPHYLAXIS AGAINST DIARRHOEA
     Dosage: TOTAL DAILY DOSE: 2 MG, AS REQUIRED
     Route: 048
     Dates: start: 20170131
  22. BORTEZOMIB. [Suspect]
     Active Substance: BORTEZOMIB
     Dosage: 1.3 MG/M2, 16 MG, CYCLICAL (DAYS 1, 4, 8, AND 11 OF 21 DAY CYCLE)
     Route: 058
     Dates: start: 20170131, end: 20170620
  23. PARACETAMOL [Concomitant]
     Active Substance: ACETAMINOPHEN
     Indication: PAIN IN EXTREMITY
     Dosage: 500 MG, QD
     Route: 048
     Dates: start: 20170324
  24. PARACETAMOL [Concomitant]
     Active Substance: ACETAMINOPHEN
     Indication: PAIN IN EXTREMITY
  25. ORAMORPH [Concomitant]
     Active Substance: MORPHINE SULFATE
     Indication: PAIN IN EXTREMITY
  26. CALCEOS [Concomitant]
     Active Substance: CALCIUM CARBONATE\CHOLECALCIFEROL
     Indication: BONE LESION
     Dosage: 1000 MILLIGRAM DAILY; 500 MG, BID
     Route: 048
     Dates: start: 201209
  27. ZOMETA [Concomitant]
     Active Substance: ZOLEDRONIC ACID
     Indication: BONE LESION
     Dosage: 4 MG, QM3
     Dates: start: 20140102

REACTIONS (2)
  - Confusional state [Not Recovered/Not Resolved]
  - Lower respiratory tract infection [Recovered/Resolved]

NARRATIVE: CASE EVENT DATE: 20170530
